FAERS Safety Report 5997060-3 (Version None)
Quarter: 2008Q4

REPORT INFORMATION
  Report Type: 
  Country: None (occurrence: None)
  Receive Date: 20081212
  Receipt Date: 20081103
  Transmission Date: 20090506
  Serious: No
  Sender: FDA-Public Use
  Company Number: US-ABBOTT-08P-163-0485240-00

PATIENT
  Sex: Male
  Weight: 127.12 kg

DRUGS (5)
  1. HUMIRA [Suspect]
     Indication: CROHN'S DISEASE
     Route: 058
  2. ESOMEPRAZOLE MAGNESIUM [Concomitant]
     Indication: GASTROOESOPHAGEAL REFLUX DISEASE
     Route: 048
  3. DICYCLOMINE HCL [Concomitant]
     Indication: MUSCLE SPASMS
  4. CORTICEDEN [Concomitant]
     Indication: DRUG USE FOR UNKNOWN INDICATION
     Route: 061
  5. CORTISONE ACETATE TAB [Concomitant]
     Indication: DRUG USE FOR UNKNOWN INDICATION
     Route: 061

REACTIONS (1)
  - INCORRECT DOSE ADMINISTERED [None]
